FAERS Safety Report 7247387-2 (Version None)
Quarter: 2011Q1

REPORT INFORMATION
  Report Type: 
  Country: None (occurrence: None)
  Receive Date: 20110127
  Receipt Date: 20110117
  Transmission Date: 20110831
  Serious: Yes (Hospitalization)
  Sender: FDA-Public Use
  Company Number: PHHY2010JP80833

PATIENT
  Age: 86 Year
  Sex: Male

DRUGS (4)
  1. AMLODIPINE [Concomitant]
     Dosage: 5 MG, UNK
     Route: 048
  2. RITALIN [Suspect]
     Indication: NARCOLEPSY
     Dosage: 1 MG, QD
     Route: 048
     Dates: start: 20070101
  3. AMOXAN [Concomitant]
     Dosage: 40 MG, UNK
     Route: 048
  4. PAXIL [Concomitant]
     Dosage: 10 MG, UNK
     Route: 048

REACTIONS (2)
  - FEMUR FRACTURE [None]
  - FALL [None]
